FAERS Safety Report 5385062-X (Version None)
Quarter: 2007Q3

REPORT INFORMATION
  Report Type: 
  Country: None (occurrence: None)
  Receive Date: 20070710
  Receipt Date: 20070710
  Transmission Date: 20080115
  Serious: Yes (Hospitalization)
  Sender: FDA-Public Use
  Company Number: None

PATIENT
  Age: 51 Year
  Sex: Male
  Weight: 140.6151 kg

DRUGS (3)
  1. CISPLATIN [Suspect]
     Dosage: WEEKLY, IV STARTED 3/21/07
     Route: 042
     Dates: start: 20070321
  2. ERBITUX [Suspect]
     Dosage: WKLY, IV, STARTED 3/21/07
     Route: 042
     Dates: start: 20070321
  3. RADIATION DAILY STARTED 5/29/07 [Suspect]
     Dates: start: 20070529

REACTIONS (3)
  - DIARRHOEA [None]
  - HAEMATEMESIS [None]
  - OESOPHAGEAL RUPTURE [None]
